FAERS Safety Report 22304682 (Version 2)
Quarter: 2023Q2

REPORT INFORMATION
  Report Type: Spontaneous
  Country: US (occurrence: US)
  Receive Date: 20230510
  Receipt Date: 20230524
  Transmission Date: 20230721
  Serious: Yes (Other)
  Sender: FDA-Public Use
  Company Number: US-LUPIN PHARMACEUTICALS INC.-2023-03556

PATIENT

DRUGS (1)
  1. CEFDINIR [Suspect]
     Active Substance: CEFDINIR
     Indication: COVID-19
     Dosage: 1 DOSAGE FORM, BID (FOR 5 DAYS)
     Route: 048
     Dates: end: 20230122

REACTIONS (4)
  - Glaucoma [Recovered/Resolved with Sequelae]
  - Product use in unapproved indication [Unknown]
  - Diarrhoea [Unknown]
  - Fungal infection [Unknown]
